FAERS Safety Report 7034758-2 (Version None)
Quarter: 2010Q4

REPORT INFORMATION
  Report Type: 
  Country: None (occurrence: None)
  Receive Date: 20101008
  Receipt Date: 20101001
  Transmission Date: 20110411
  Serious: Yes (Hospitalization)
  Sender: FDA-Public Use
  Company Number: PHHO2010US15127

PATIENT
  Sex: Male

DRUGS (10)
  1. AFINITOR [Suspect]
     Indication: COLORECTAL CANCER METASTATIC
     Dosage: 10MG DAILY
     Route: 048
  2. CELEXA [Concomitant]
  3. COMPAZINE [Concomitant]
  4. HYDROMORPHONE HCL [Concomitant]
  5. IMODIUM [Concomitant]
  6. LORAZEPAM [Concomitant]
  7. NAPROXEN SODIUM [Concomitant]
  8. OXYCODONE [Concomitant]
  9. URSODIOL [Concomitant]
  10. ZOFRAN [Concomitant]

REACTIONS (5)
  - DIARRHOEA [None]
  - DIPLOPIA [None]
  - HYPONATRAEMIA [None]
  - SUBDURAL HAEMATOMA [None]
  - VOMITING [None]
